FAERS Safety Report 24391633 (Version 2)
Quarter: 2024Q4

REPORT INFORMATION
  Report Type: Report from Study
  Country: US (occurrence: US)
  Receive Date: 20241003
  Receipt Date: 20241027
  Transmission Date: 20250115
  Serious: Yes (Hospitalization, Other)
  Sender: JOHNSON AND JOHNSON
  Company Number: US-JNJFOC-20240967311

PATIENT
  Age: 2 Year
  Sex: Female
  Weight: 11.4 kg

DRUGS (4)
  1. BOSENTAN [Suspect]
     Active Substance: BOSENTAN
     Indication: Pulmonary arterial hypertension
     Route: 048
  2. REMODULIN [Concomitant]
     Active Substance: TREPROSTINIL
  3. AMBRISENTAN [Concomitant]
     Active Substance: AMBRISENTAN
  4. SILDENAFIL CITRATE [Concomitant]
     Active Substance: SILDENAFIL CITRATE

REACTIONS (4)
  - Salmonellosis [Unknown]
  - Viral infection [Unknown]
  - Cleft palate repair [Unknown]
  - Off label use [Unknown]

NARRATIVE: CASE EVENT DATE: 20240910
